FAERS Safety Report 16763614 (Version 4)
Quarter: 2021Q1

REPORT INFORMATION
  Report Type: Spontaneous
  Country: US (occurrence: US)
  Receive Date: 20190902
  Receipt Date: 20210315
  Transmission Date: 20210419
  Serious: Yes (Other)
  Sender: FDA-Public Use
  Company Number: US-GILEAD-2019-0425713

PATIENT
  Age: 45 Year
  Sex: Female

DRUGS (4)
  1. VIREAD [Suspect]
     Active Substance: TENOFOVIR DISOPROXIL FUMARATE
     Indication: HIV INFECTION
     Dosage: UNK
     Route: 048
     Dates: start: 1997, end: 2018
  2. DESCOVY [Concomitant]
     Active Substance: EMTRICITABINE\TENOFOVIR ALAFENAMIDE FUMARATE
  3. COMPLERA [Suspect]
     Active Substance: EMTRICITABINE\RILPIVIRINE HYDROCHLORIDE\TENOFOVIR DISOPROXIL FUMARATE
     Indication: HIV INFECTION
     Dosage: UNK
     Route: 048
     Dates: start: 1997, end: 2018
  4. TRUVADA [Suspect]
     Active Substance: EMTRICITABINE\TENOFOVIR DISOPROXIL FUMARATE
     Indication: HIV INFECTION
     Dosage: UNK
     Route: 048
     Dates: start: 1996, end: 2013

REACTIONS (8)
  - Economic problem [Unknown]
  - Anxiety [Unknown]
  - Pain [Unknown]
  - Foot fracture [Not Recovered/Not Resolved]
  - Emotional distress [Unknown]
  - Anhedonia [Unknown]
  - Bone density decreased [Unknown]
  - Tooth loss [Unknown]

NARRATIVE: CASE EVENT DATE: 20190522
